FAERS Safety Report 5363128-8 (Version None)
Quarter: 2007Q2

REPORT INFORMATION
  Report Type: 
  Country: None (occurrence: None)
  Receive Date: 20070618
  Receipt Date: 20070612
  Transmission Date: 20071010
  Serious: Yes (Hospitalization)
  Sender: FDA-Public Use
  Company Number: 2007SP002106

PATIENT
  Age: 33 Year
  Sex: Female
  Weight: 53.978 kg

DRUGS (4)
  1. LUNESTA [Suspect]
     Indication: STRESS
     Dosage: 4 MG; 3 MG; ORAL
     Route: 048
     Dates: start: 20070504, end: 20070512
  2. LUNESTA [Suspect]
     Indication: STRESS
     Dosage: 4 MG; 3 MG; ORAL
     Route: 048
     Dates: start: 20070523, end: 20070524
  3. TOPAMAX [Concomitant]
  4. ANTIBIOTICS [Concomitant]

REACTIONS (7)
  - DIZZINESS [None]
  - MALAISE [None]
  - NAUSEA [None]
  - OXYGEN SATURATION DECREASED [None]
  - RESPIRATORY ARREST [None]
  - SYNCOPE [None]
  - TREATMENT NONCOMPLIANCE [None]
